FAERS Safety Report 19642122 (Version 1)
Quarter: 2021Q3

REPORT INFORMATION
  Report Type: Spontaneous
  Country: GB (occurrence: GB)
  Receive Date: 20210730
  Receipt Date: 20210730
  Transmission Date: 20211014
  Serious: Yes (Other)
  Sender: FDA-Public Use
  Company Number: GB-MYLANLABS-2021M1045745

PATIENT
  Age: 56 Year
  Sex: Male
  Weight: 63 kg

DRUGS (1)
  1. NITROFURANTOIN. [Suspect]
     Active Substance: NITROFURANTOIN
     Indication: URINARY TRACT INFECTION
     Dosage: 50 MILLIGRAM, QID (50MG 4 TIMES A DAY)
     Route: 048
     Dates: start: 20210602

REACTIONS (2)
  - Paraesthesia [Recovered/Resolved with Sequelae]
  - Urethral pain [Recovered/Resolved with Sequelae]

NARRATIVE: CASE EVENT DATE: 20210705
